FAERS Safety Report 21060741 (Version 1)
Quarter: 2022Q3

REPORT INFORMATION
  Report Type: Spontaneous
  Country: US (occurrence: US)
  Receive Date: 20220709
  Receipt Date: 20220709
  Transmission Date: 20221027
  Serious: Yes (Other)
  Sender: FDA-Public Use
  Company Number: US-BRISTOL-MYERS SQUIBB COMPANY-2022-067386

PATIENT
  Age: 51 Year
  Sex: Male
  Weight: 108 kg

DRUGS (1)
  1. REVLIMID [Suspect]
     Active Substance: LENALIDOMIDE
     Indication: Product used for unknown indication
     Dosage: 14 DAYS ON AND 7 DAYS OFF
     Route: 048

REACTIONS (4)
  - Cytopenia [Unknown]
  - Anaemia [Unknown]
  - Leukopenia [Unknown]
  - Product use in unapproved indication [Unknown]
